FAERS Safety Report 9010176 (Version 1)
Quarter: 2013Q1

REPORT INFORMATION
  Report Type: Spontaneous
  Country: US (occurrence: US)
  Receive Date: 20130110
  Receipt Date: 20130110
  Transmission Date: 20140127
  Serious: Yes (Other)
  Sender: FDA-Public Use
  Company Number: PHEH2013US000805

PATIENT
  Sex: Female

DRUGS (2)
  1. EXELON PATCH [Suspect]
     Route: 062
  2. EXELON PATCH [Suspect]
     Dosage: DOSE INCREASED

REACTIONS (3)
  - Oral mucosal exfoliation [Unknown]
  - Rash [Unknown]
  - Salivary hypersecretion [Unknown]
